FAERS Safety Report 25417073 (Version 1)
Quarter: 2025Q2

REPORT INFORMATION
  Report Type: Spontaneous
  Country: GB (occurrence: GB)
  Receive Date: 20250610
  Receipt Date: 20250610
  Transmission Date: 20250716
  Serious: Yes (Other)
  Sender: MYLAN
  Company Number: GB-MHRA-TPP5038061C11843771YC1748873864495

PATIENT
  Age: 75 Year
  Sex: Female
  Weight: 88 kg

DRUGS (68)
  1. DOXYCYCLINE [Suspect]
     Active Substance: DOXYCYCLINE
     Indication: Product used for unknown indication
     Dosage: 200 MILLIGRAM, QD (TAKE TWO CAPSULES ON THE FIRST DAY, AND THEN ON...100MG CAPSULES)
     Dates: start: 20250527, end: 20250601
  2. DOXYCYCLINE [Suspect]
     Active Substance: DOXYCYCLINE
     Dosage: 200 MILLIGRAM, QD (TAKE TWO CAPSULES ON THE FIRST DAY, AND THEN ON...100MG CAPSULES)
     Route: 065
     Dates: start: 20250527, end: 20250601
  3. DOXYCYCLINE [Suspect]
     Active Substance: DOXYCYCLINE
     Dosage: 200 MILLIGRAM, QD (TAKE TWO CAPSULES ON THE FIRST DAY, AND THEN ON...100MG CAPSULES)
     Route: 065
     Dates: start: 20250527, end: 20250601
  4. DOXYCYCLINE [Suspect]
     Active Substance: DOXYCYCLINE
     Dosage: 200 MILLIGRAM, QD (TAKE TWO CAPSULES ON THE FIRST DAY, AND THEN ON...100MG CAPSULES)
     Dates: start: 20250527, end: 20250601
  5. MORPHINE SULFATE [Concomitant]
     Active Substance: MORPHINE SULFATE
     Indication: Ill-defined disorder
     Dosage: 1 DOSAGE FORM, BID (TAKE ONE EVERY 12 HRS)
     Dates: start: 20250428, end: 20250528
  6. MORPHINE SULFATE [Concomitant]
     Active Substance: MORPHINE SULFATE
     Dosage: 1 DOSAGE FORM, BID (TAKE ONE EVERY 12 HRS)
     Route: 065
     Dates: start: 20250428, end: 20250528
  7. MORPHINE SULFATE [Concomitant]
     Active Substance: MORPHINE SULFATE
     Dosage: 1 DOSAGE FORM, BID (TAKE ONE EVERY 12 HRS)
     Route: 065
     Dates: start: 20250428, end: 20250528
  8. MORPHINE SULFATE [Concomitant]
     Active Substance: MORPHINE SULFATE
     Dosage: 1 DOSAGE FORM, BID (TAKE ONE EVERY 12 HRS)
     Dates: start: 20250428, end: 20250528
  9. RAMIPRIL [Concomitant]
     Active Substance: RAMIPRIL
     Indication: Ill-defined disorder
     Dosage: 1 DOSAGE FORM, QD, (TAKE ONE DAILY)
     Dates: start: 20250411, end: 20250509
  10. RAMIPRIL [Concomitant]
     Active Substance: RAMIPRIL
     Dosage: 1 DOSAGE FORM, QD, (TAKE ONE DAILY)
     Route: 065
     Dates: start: 20250411, end: 20250509
  11. RAMIPRIL [Concomitant]
     Active Substance: RAMIPRIL
     Dosage: 1 DOSAGE FORM, QD, (TAKE ONE DAILY)
     Route: 065
     Dates: start: 20250411, end: 20250509
  12. RAMIPRIL [Concomitant]
     Active Substance: RAMIPRIL
     Dosage: 1 DOSAGE FORM, QD, (TAKE ONE DAILY)
     Dates: start: 20250411, end: 20250509
  13. MOUNJARO [Concomitant]
     Active Substance: TIRZEPATIDE
     Indication: Ill-defined disorder
  14. MOUNJARO [Concomitant]
     Active Substance: TIRZEPATIDE
     Route: 065
  15. MOUNJARO [Concomitant]
     Active Substance: TIRZEPATIDE
     Route: 065
  16. MOUNJARO [Concomitant]
     Active Substance: TIRZEPATIDE
  17. ESTRADIOL [Concomitant]
     Active Substance: ESTRADIOL
     Indication: Ill-defined disorder
     Dosage: 1 DOSAGE FORM, PM (INSERT ONE AT NIGHT EVERY NIGHT FOR 2 WEEKS, TH...  )
     Dates: start: 20250513
  18. ESTRADIOL [Concomitant]
     Active Substance: ESTRADIOL
     Dosage: 1 DOSAGE FORM, PM (INSERT ONE AT NIGHT EVERY NIGHT FOR 2 WEEKS, TH...  )
     Route: 065
     Dates: start: 20250513
  19. ESTRADIOL [Concomitant]
     Active Substance: ESTRADIOL
     Dosage: 1 DOSAGE FORM, PM (INSERT ONE AT NIGHT EVERY NIGHT FOR 2 WEEKS, TH...  )
     Route: 065
     Dates: start: 20250513
  20. ESTRADIOL [Concomitant]
     Active Substance: ESTRADIOL
     Dosage: 1 DOSAGE FORM, PM (INSERT ONE AT NIGHT EVERY NIGHT FOR 2 WEEKS, TH...  )
     Dates: start: 20250513
  21. AMOXICILLIN [Concomitant]
     Active Substance: AMOXICILLIN
     Indication: Ill-defined disorder
     Dosage: 1 DOSAGE FORM, TID (TAKE ONE 3 TIMES/DAY )
     Dates: start: 20250530
  22. AMOXICILLIN [Concomitant]
     Active Substance: AMOXICILLIN
     Dosage: 1 DOSAGE FORM, TID (TAKE ONE 3 TIMES/DAY )
     Route: 065
     Dates: start: 20250530
  23. AMOXICILLIN [Concomitant]
     Active Substance: AMOXICILLIN
     Dosage: 1 DOSAGE FORM, TID (TAKE ONE 3 TIMES/DAY )
     Route: 065
     Dates: start: 20250530
  24. AMOXICILLIN [Concomitant]
     Active Substance: AMOXICILLIN
     Dosage: 1 DOSAGE FORM, TID (TAKE ONE 3 TIMES/DAY )
     Dates: start: 20250530
  25. Easyhaler [Concomitant]
     Indication: Ill-defined disorder
  26. Easyhaler [Concomitant]
     Route: 055
  27. Easyhaler [Concomitant]
     Route: 055
  28. Easyhaler [Concomitant]
  29. ASPIRIN [Concomitant]
     Active Substance: ASPIRIN
     Indication: Ill-defined disorder
     Dosage: 1 DOSAGE FORM, QD, (TAKE ONE DAILY)
     Dates: start: 20240425
  30. ASPIRIN [Concomitant]
     Active Substance: ASPIRIN
     Dosage: 1 DOSAGE FORM, QD, (TAKE ONE DAILY)
     Route: 065
     Dates: start: 20240425
  31. ASPIRIN [Concomitant]
     Active Substance: ASPIRIN
     Dosage: 1 DOSAGE FORM, QD, (TAKE ONE DAILY)
     Route: 065
     Dates: start: 20240425
  32. ASPIRIN [Concomitant]
     Active Substance: ASPIRIN
     Dosage: 1 DOSAGE FORM, QD, (TAKE ONE DAILY)
     Dates: start: 20240425
  33. ATORVASTATIN [Concomitant]
     Active Substance: ATORVASTATIN
     Indication: Ill-defined disorder
     Dosage: 1 DOSAGE FORM, QD, (TAKE ONE DAILY)
     Dates: start: 20240425
  34. ATORVASTATIN [Concomitant]
     Active Substance: ATORVASTATIN
     Dosage: 1 DOSAGE FORM, QD, (TAKE ONE DAILY)
     Route: 065
     Dates: start: 20240425
  35. ATORVASTATIN [Concomitant]
     Active Substance: ATORVASTATIN
     Dosage: 1 DOSAGE FORM, QD, (TAKE ONE DAILY)
     Route: 065
     Dates: start: 20240425
  36. ATORVASTATIN [Concomitant]
     Active Substance: ATORVASTATIN
     Dosage: 1 DOSAGE FORM, QD, (TAKE ONE DAILY)
     Dates: start: 20240425
  37. CALCIUM CARBONATE\CHOLECALCIFEROL [Concomitant]
     Active Substance: CALCIUM CARBONATE\CHOLECALCIFEROL
     Indication: Ill-defined disorder
     Dosage: 1 DOSAGE FORM, BID (TAKE ONE TWICE DA)
     Dates: start: 20240425
  38. CALCIUM CARBONATE\CHOLECALCIFEROL [Concomitant]
     Active Substance: CALCIUM CARBONATE\CHOLECALCIFEROL
     Dosage: 1 DOSAGE FORM, BID (TAKE ONE TWICE DA)
     Route: 065
     Dates: start: 20240425
  39. CALCIUM CARBONATE\CHOLECALCIFEROL [Concomitant]
     Active Substance: CALCIUM CARBONATE\CHOLECALCIFEROL
     Dosage: 1 DOSAGE FORM, BID (TAKE ONE TWICE DA)
     Route: 065
     Dates: start: 20240425
  40. CALCIUM CARBONATE\CHOLECALCIFEROL [Concomitant]
     Active Substance: CALCIUM CARBONATE\CHOLECALCIFEROL
     Dosage: 1 DOSAGE FORM, BID (TAKE ONE TWICE DA)
     Dates: start: 20240425
  41. FERROUS FUMARATE [Concomitant]
     Active Substance: FERROUS FUMARATE
     Indication: Ill-defined disorder
     Dosage: 1 DOSAGE FORM, QD, (TAKE ONE DAILY)
     Dates: start: 20240425
  42. FERROUS FUMARATE [Concomitant]
     Active Substance: FERROUS FUMARATE
     Dosage: 1 DOSAGE FORM, QD, (TAKE ONE DAILY)
     Route: 065
     Dates: start: 20240425
  43. FERROUS FUMARATE [Concomitant]
     Active Substance: FERROUS FUMARATE
     Dosage: 1 DOSAGE FORM, QD, (TAKE ONE DAILY)
     Route: 065
     Dates: start: 20240425
  44. FERROUS FUMARATE [Concomitant]
     Active Substance: FERROUS FUMARATE
     Dosage: 1 DOSAGE FORM, QD, (TAKE ONE DAILY)
     Dates: start: 20240425
  45. SERTRALINE [Concomitant]
     Active Substance: SERTRALINE HYDROCHLORIDE
     Indication: Ill-defined disorder
     Dosage: 2 DOSAGE FORM, QD (TAKE TWO DAILY)
     Dates: start: 20240425
  46. SERTRALINE [Concomitant]
     Active Substance: SERTRALINE HYDROCHLORIDE
     Dosage: 2 DOSAGE FORM, QD (TAKE TWO DAILY)
     Route: 065
     Dates: start: 20240425
  47. SERTRALINE [Concomitant]
     Active Substance: SERTRALINE HYDROCHLORIDE
     Dosage: 2 DOSAGE FORM, QD (TAKE TWO DAILY)
     Route: 065
     Dates: start: 20240425
  48. SERTRALINE [Concomitant]
     Active Substance: SERTRALINE HYDROCHLORIDE
     Dosage: 2 DOSAGE FORM, QD (TAKE TWO DAILY)
     Dates: start: 20240425
  49. MIRABEGRON [Concomitant]
     Active Substance: MIRABEGRON
     Indication: Ill-defined disorder
     Dosage: 1 DOSAGE FORM, QD, (TAKE ONE DAILY)
     Dates: start: 20240515
  50. MIRABEGRON [Concomitant]
     Active Substance: MIRABEGRON
     Dosage: 1 DOSAGE FORM, QD, (TAKE ONE DAILY)
     Route: 065
     Dates: start: 20240515
  51. MIRABEGRON [Concomitant]
     Active Substance: MIRABEGRON
     Dosage: 1 DOSAGE FORM, QD, (TAKE ONE DAILY)
     Route: 065
     Dates: start: 20240515
  52. MIRABEGRON [Concomitant]
     Active Substance: MIRABEGRON
     Dosage: 1 DOSAGE FORM, QD, (TAKE ONE DAILY)
     Dates: start: 20240515
  53. ACETAMINOPHEN [Concomitant]
     Active Substance: ACETAMINOPHEN
     Indication: Ill-defined disorder
  54. ACETAMINOPHEN [Concomitant]
     Active Substance: ACETAMINOPHEN
     Route: 065
  55. ACETAMINOPHEN [Concomitant]
     Active Substance: ACETAMINOPHEN
     Route: 065
  56. ACETAMINOPHEN [Concomitant]
     Active Substance: ACETAMINOPHEN
  57. Visuxl [Concomitant]
     Indication: Ill-defined disorder
     Dosage: 2 DOSAGE FORM, BID (ONE DROP TWICE A DAY TO BOTH EYES)
     Dates: start: 20240806
  58. Visuxl [Concomitant]
     Dosage: 2 DOSAGE FORM, BID (ONE DROP TWICE A DAY TO BOTH EYES)
     Route: 047
     Dates: start: 20240806
  59. Visuxl [Concomitant]
     Dosage: 2 DOSAGE FORM, BID (ONE DROP TWICE A DAY TO BOTH EYES)
     Route: 047
     Dates: start: 20240806
  60. Visuxl [Concomitant]
     Dosage: 2 DOSAGE FORM, BID (ONE DROP TWICE A DAY TO BOTH EYES)
     Dates: start: 20240806
  61. BECLOMETHASONE\FORMOTEROL [Concomitant]
     Active Substance: BECLOMETHASONE\FORMOTEROL
     Indication: Ill-defined disorder
     Dosage: 2 DOSAGE FORM, BID (TWO PUFFS TWICE DAILY. PLEASE RETURN YOUR EMPTY..)
     Dates: start: 20241231
  62. BECLOMETHASONE\FORMOTEROL [Concomitant]
     Active Substance: BECLOMETHASONE\FORMOTEROL
     Dosage: 2 DOSAGE FORM, BID (TWO PUFFS TWICE DAILY. PLEASE RETURN YOUR EMPTY..)
     Route: 065
     Dates: start: 20241231
  63. BECLOMETHASONE\FORMOTEROL [Concomitant]
     Active Substance: BECLOMETHASONE\FORMOTEROL
     Dosage: 2 DOSAGE FORM, BID (TWO PUFFS TWICE DAILY. PLEASE RETURN YOUR EMPTY..)
     Route: 065
     Dates: start: 20241231
  64. BECLOMETHASONE\FORMOTEROL [Concomitant]
     Active Substance: BECLOMETHASONE\FORMOTEROL
     Dosage: 2 DOSAGE FORM, BID (TWO PUFFS TWICE DAILY. PLEASE RETURN YOUR EMPTY..)
     Dates: start: 20241231
  65. OMEPRAZOLE [Concomitant]
     Active Substance: OMEPRAZOLE
     Indication: Ill-defined disorder
     Dosage: UNK UNK, QD (TAKE ONE UP TO TWICE A DAY AS DIRECTED)
     Dates: start: 20241231
  66. OMEPRAZOLE [Concomitant]
     Active Substance: OMEPRAZOLE
     Dosage: UNK UNK, QD (TAKE ONE UP TO TWICE A DAY AS DIRECTED)
     Route: 065
     Dates: start: 20241231
  67. OMEPRAZOLE [Concomitant]
     Active Substance: OMEPRAZOLE
     Dosage: UNK UNK, QD (TAKE ONE UP TO TWICE A DAY AS DIRECTED)
     Route: 065
     Dates: start: 20241231
  68. OMEPRAZOLE [Concomitant]
     Active Substance: OMEPRAZOLE
     Dosage: UNK UNK, QD (TAKE ONE UP TO TWICE A DAY AS DIRECTED)
     Dates: start: 20241231

REACTIONS (1)
  - Swelling face [Recovered/Resolved]
